FAERS Safety Report 7434944-3 (Version None)
Quarter: 2011Q2

REPORT INFORMATION
  Report Type: 
  Country: None (occurrence: None)
  Receive Date: 20110425
  Receipt Date: 20110421
  Transmission Date: 20111010
  Serious: Yes (Other)
  Sender: FDA-Public Use
  Company Number: DE-ABBOTT-11P-062-0715716-00

PATIENT
  Sex: Male
  Weight: 129 kg

DRUGS (7)
  1. ENBREL [Suspect]
     Indication: PSORIATIC ARTHROPATHY
  2. DOXACOR [Concomitant]
     Indication: HYPERTENSION
  3. AMLODIPINE [Concomitant]
     Indication: PRODUCT USED FOR UNKNOWN INDICATION
  4. METOPROLOL SUCCINATE [Concomitant]
     Indication: HYPERTENSION
  5. HUMIRA [Suspect]
     Indication: PSORIASIS
     Dates: start: 20100201, end: 20110301
  6. HUMIRA [Suspect]
     Indication: PSORIATIC ARTHROPATHY
  7. ENBREL [Suspect]
     Indication: PSORIASIS
     Dates: start: 20061001, end: 20090601

REACTIONS (3)
  - LIVER FUNCTION TEST ABNORMAL [None]
  - POLYCYTHAEMIA VERA [None]
  - MYELODYSPLASTIC SYNDROME [None]
